FAERS Safety Report 9183295 (Version 1)
Quarter: 2012Q4

REPORT INFORMATION
  Report Type: Report from Study
  Country: JP (occurrence: JP)
  Receive Date: 20121031
  Receipt Date: 20121031
  Transmission Date: 20130627
  Serious: Yes (Other)
  Sender: FDA-Public Use
  Company Number: JP-VERTEX PHARMACEUTICAL INC.-AE-2012-011126

PATIENT
  Age: 60 Year
  Sex: Male

DRUGS (8)
  1. VX-950 [Suspect]
     Indication: HEPATITIS C
     Dosage: 2250 mg, qd
     Route: 048
     Dates: start: 20120126, end: 20120418
  2. PEGINTRON                          /01543001/ [Suspect]
     Indication: HEPATITIS C
     Route: 058
     Dates: start: 20120126, end: 20120524
  3. PEGINTRON                          /01543001/ [Suspect]
     Dosage: 1 �g/kg, UNK
     Route: 058
     Dates: start: 20120531, end: 20120705
  4. REBETOL [Concomitant]
     Dosage: 600 mg, qd
     Route: 048
     Dates: start: 20120126, end: 20120207
  5. REBETOL [Concomitant]
     Dosage: 400 mg, qd
     Route: 048
     Dates: start: 20120208, end: 20120220
  6. REBETOL [Concomitant]
     Dosage: 200 mg, qd
     Route: 048
     Dates: start: 20120221, end: 20120607
  7. REBETOL [Concomitant]
     Dosage: 400 mg, qd
     Route: 048
     Dates: start: 20120608, end: 20120711
  8. URSO                               /00465701/ [Concomitant]
     Dosage: 600 mg, qd
     Route: 048

REACTIONS (1)
  - Neutrophil count decreased [Not Recovered/Not Resolved]
